FAERS Safety Report 4844190-5 (Version None)
Quarter: 2005Q4

REPORT INFORMATION
  Report Type: 
  Country: None (occurrence: None)
  Receive Date: 20051202
  Receipt Date: 20051028
  Transmission Date: 20060501
  Serious: Yes (Life-Threatening, Hospitalization)
  Sender: FDA-Public Use
  Company Number: GBWYE097228OCT05

PATIENT
  Sex: Male

DRUGS (5)
  1. ENBREL [Suspect]
     Indication: AMYLOIDOSIS
     Route: 058
     Dates: start: 20051012, end: 20051020
  2. METHOTREXATE [Concomitant]
     Route: 065
     Dates: start: 20051001, end: 20051001
  3. ALLOPURINOL [Concomitant]
     Route: 065
  4. SULINDAC [Concomitant]
     Route: 065
  5. LANSOPRAZOLE [Concomitant]
     Route: 065

REACTIONS (1)
  - WHITE BLOOD CELL COUNT DECREASED [None]
